FAERS Safety Report 13066683 (Version 1)
Quarter: 2016Q4

REPORT INFORMATION
  Report Type: Spontaneous
  Country: BE (occurrence: BE)
  Receive Date: 20161227
  Receipt Date: 20161227
  Transmission Date: 20170207
  Serious: No
  Sender: FDA-Public Use
  Company Number: BE-JNJFOC-20140826369

PATIENT
  Age: 38 Year
  Sex: Female
  Weight: 83 kg

DRUGS (4)
  1. STELARA [Suspect]
     Active Substance: USTEKINUMAB
     Indication: PSORIASIS
     Route: 058
     Dates: start: 20110426
  2. STELARA [Suspect]
     Active Substance: USTEKINUMAB
     Indication: PSORIASIS
     Route: 058
  3. LEDERTREXATE [Suspect]
     Active Substance: METHOTREXATE
     Indication: PSORIASIS
     Route: 065
     Dates: start: 20131021, end: 20140414
  4. DOVOBET [Concomitant]
     Active Substance: BETAMETHASONE\CALCIPOTRIENE
     Route: 061

REACTIONS (3)
  - Drug effect decreased [Unknown]
  - Psoriasis [Unknown]
  - Guttate psoriasis [Recovering/Resolving]

NARRATIVE: CASE EVENT DATE: 201310
